FAERS Safety Report 21383551 (Version 3)
Quarter: 2022Q4

REPORT INFORMATION
  Report Type: Report from Study
  Country: US (occurrence: US)
  Receive Date: 20220927
  Receipt Date: 20221006
  Transmission Date: 20230113
  Serious: Yes (Hospitalization, Other)
  Sender: FDA-Public Use
  Company Number: US-GBT-016544

PATIENT
  Age: 31 Year
  Sex: Female

DRUGS (5)
  1. OXBRYTA [Suspect]
     Active Substance: VOXELOTOR
     Indication: Sickle cell disease
     Dates: start: 20210526, end: 20220627
  2. ROXICODONE [Concomitant]
     Active Substance: OXYCODONE HYDROCHLORIDE
     Indication: Sickle cell disease
     Route: 048
     Dates: start: 20160629
  3. ASPIRIN [Concomitant]
     Active Substance: ASPIRIN
     Indication: Prophylaxis
     Route: 048
     Dates: start: 20190104
  4. FOLVITE [Concomitant]
     Active Substance: FOLIC ACID
     Indication: Sickle cell disease
     Route: 048
     Dates: start: 20111027
  5. CHOLECALCIFEROL [Concomitant]
     Active Substance: CHOLECALCIFEROL
     Indication: Sickle cell disease
     Dosage: 50 MCG
     Route: 048
     Dates: start: 20191014

REACTIONS (2)
  - Pneumonia [Recovered/Resolved]
  - Acute chest syndrome [Recovered/Resolved]

NARRATIVE: CASE EVENT DATE: 20220628
